FAERS Safety Report 8801459 (Version 2)
Quarter: 2012Q4

REPORT INFORMATION
  Report Type: Report from Study
  Country: US (occurrence: US)
  Receive Date: 20120921
  Receipt Date: 20121017
  Transmission Date: 20130627
  Serious: Yes (Other)
  Sender: FDA-Public Use
  Company Number: US-ABBOTT-12P-163-0980974-00

PATIENT
  Age: 49 Year
  Sex: Female
  Weight: 74 kg

DRUGS (4)
  1. HUMIRA PRE-FILLED SYRINGE [Suspect]
     Indication: CROHN^S DISEASE
     Dates: start: 201205
  2. HUMIRA PRE-FILLED SYRINGE [Suspect]
     Indication: INTESTINAL FISTULA
  3. MERCAPTOPURINE [Concomitant]
     Indication: PRODUCT USED FOR UNKNOWN INDICATION
     Dosage: Everyday
  4. PENTASA [Concomitant]
     Indication: CROHN^S DISEASE

REACTIONS (2)
  - Anal fistula [Recovered/Resolved]
  - Liver function test abnormal [Recovered/Resolved]
